FAERS Safety Report 5206416-8 (Version None)
Quarter: 2006Q4

REPORT INFORMATION
  Report Type: 
  Country: None (occurrence: None)
  Receive Date: 20061026
  Receipt Date: 20060828
  Transmission Date: 20070319
  Serious: Yes (Other)
  Sender: FDA-Public Use
  Company Number: 2006105644

PATIENT
  Age: 52 Year
  Sex: Female
  Weight: 68.0396 kg

DRUGS (9)
  1. LYRICA [Suspect]
     Indication: DRUG USE FOR UNKNOWN INDICATION
     Dosage: 150 MG (50 MG, 3 IN 1 D), ORAL
     Route: 048
     Dates: start: 20060501
  2. ESTRADIOL [Concomitant]
  3. ALPRAZOLAM [Concomitant]
  4. METOCLOPRAMIDE [Concomitant]
  5. LISINOPRIL [Concomitant]
  6. CYCLOBENZAPRINE HCL [Concomitant]
  7. CITALOPRAM HYDROBROMIDE [Concomitant]
  8. HYDROCHLOROTHIAZIDE [Concomitant]
  9. PROTONIX [Concomitant]

REACTIONS (1)
  - AMNESIA [None]
